FAERS Safety Report 19611214 (Version 4)
Quarter: 2022Q4

REPORT INFORMATION
  Report Type: Spontaneous
  Country: US (occurrence: US)
  Receive Date: 20210726
  Receipt Date: 20221207
  Transmission Date: 20230113
  Serious: Yes (Other)
  Sender: FDA-Public Use
  Company Number: US-PFIZER INC-2021194647

PATIENT
  Age: 84 Year
  Sex: Female
  Weight: 70.308 kg

DRUGS (7)
  1. VYNDAMAX [Suspect]
     Active Substance: TAFAMIDIS
     Indication: Amyloidosis
     Dosage: 61 MG, 1X/DAY
     Route: 048
     Dates: start: 2019, end: 20221130
  2. VYNDAMAX [Suspect]
     Active Substance: TAFAMIDIS
     Indication: Cardiac amyloidosis
  3. COUMADIN [Concomitant]
     Active Substance: WARFARIN SODIUM
     Indication: Aortic valve replacement
     Dosage: 5 MG, 1X/DAY
  4. COUMADIN [Concomitant]
     Active Substance: WARFARIN SODIUM
     Indication: Heart valve replacement
  5. METOPROLOL [Concomitant]
     Active Substance: METOPROLOL
     Indication: Cardiac operation
     Dosage: 50 MG, DAILY
  6. METOPROLOL [Concomitant]
     Active Substance: METOPROLOL
     Indication: Hypertension
  7. METOPROLOL [Concomitant]
     Active Substance: METOPROLOL
     Indication: Cardiomyopathy

REACTIONS (4)
  - Atrial fibrillation [Unknown]
  - Ventricular extrasystoles [Unknown]
  - Memory impairment [Unknown]
  - Condition aggravated [Unknown]

NARRATIVE: CASE EVENT DATE: 20190101
